FAERS Safety Report 4433843-9 (Version None)
Quarter: 2004Q3

REPORT INFORMATION
  Report Type: 
  Country: None (occurrence: None)
  Receive Date: 20040825
  Receipt Date: 20040825
  Transmission Date: 20050211
  Serious: Yes (Other)
  Sender: FDA-Public Use
  Company Number: None

PATIENT
  Age: 76 Year
  Sex: Male
  Weight: 76.2 kg

DRUGS (9)
  1. OMEPRAZOLE [Suspect]
  2. AMOXICILLIN 875/CLAV [Concomitant]
  3. CYANOCOBALAMIN [Concomitant]
  4. HCTZ 25 / TRIATERENE [Concomitant]
  5. OMEPRAZOLE [Concomitant]
  6. ALBUTEROL [Concomitant]
  7. FLUNISOLIDE INH [Concomitant]
  8. FOLIC ACID [Concomitant]
  9. AMMONIUM LACTATE [Concomitant]

REACTIONS (2)
  - NAUSEA [None]
  - VOMITING [None]
